FAERS Safety Report 5828199-0 (Version None)
Quarter: 2008Q3

REPORT INFORMATION
  Report Type: 
  Country: None (occurrence: None)
  Receive Date: 20080729
  Receipt Date: 20080722
  Transmission Date: 20090109
  Serious: Yes (Death)
  Sender: FDA-Public Use
  Company Number: 163-21880-08070118

PATIENT
  Age: 62 Year
  Sex: Male

DRUGS (1)
  1. REVLIMID [Suspect]
     Indication: MULTIPLE MYELOMA
     Dosage: 12.5 MG, 1 IN 2 D, ORAL
     Route: 048
     Dates: start: 20080515, end: 20080529

REACTIONS (2)
  - PNEUMONIA [None]
  - RESPIRATORY FAILURE [None]
